FAERS Safety Report 8029673-1 (Version None)
Quarter: 2012Q1

REPORT INFORMATION
  Report Type: 
  Country: None (occurrence: None)
  Receive Date: 20120109
  Receipt Date: 20120104
  Transmission Date: 20120608
  Serious: Yes (Other)
  Sender: FDA-Public Use
  Company Number: CN-PFIZER INC-2011313066

PATIENT
  Age: 7 Year
  Sex: Male

DRUGS (1)
  1. SOLU-MEDROL [Suspect]
     Indication: WHEEZING
     Dosage: 40MG

REACTIONS (2)
  - OCULAR HYPERTENSION [None]
  - EYE PAIN [None]
